FAERS Safety Report 8122701-4 (Version None)
Quarter: 2012Q1

REPORT INFORMATION
  Report Type: 
  Country: None (occurrence: None)
  Receive Date: 20120208
  Receipt Date: 20120130
  Transmission Date: 20120608
  Serious: No
  Sender: FDA-Public Use
  Company Number: US-BIOGENIDEC-2011BI027884

PATIENT
  Sex: Female

DRUGS (2)
  1. TYSABRI [Suspect]
     Indication: MULTIPLE SCLEROSIS
     Route: 042
     Dates: start: 20110401
  2. ADDERALL 5 [Concomitant]
     Indication: ATTENTION DEFICIT/HYPERACTIVITY DISORDER

REACTIONS (27)
  - MENTAL STATUS CHANGES [None]
  - NECK PAIN [None]
  - ULTRASOUND DOPPLER ABNORMAL [None]
  - INTERVERTEBRAL DISC PROTRUSION [None]
  - DISTURBANCE IN ATTENTION [None]
  - ROAD TRAFFIC ACCIDENT [None]
  - BACK PAIN [None]
  - OEDEMA PERIPHERAL [None]
  - FATIGUE [None]
  - MULTIPLE SCLEROSIS [None]
  - MUSCULAR WEAKNESS [None]
  - BALANCE DISORDER [None]
  - POST-TRAUMATIC NECK SYNDROME [None]
  - THROMBOSIS IN DEVICE [None]
  - MEMORY IMPAIRMENT [None]
  - BACK DISORDER [None]
  - JOINT SWELLING [None]
  - HEADACHE [None]
  - APHASIA [None]
  - COGNITIVE DISORDER [None]
  - DRY MOUTH [None]
  - CONTUSION [None]
  - ILL-DEFINED DISORDER [None]
  - DRUG INEFFECTIVE [None]
  - MOBILITY DECREASED [None]
  - FALL [None]
  - HEAD INJURY [None]
